FAERS Safety Report 8243571-X (Version None)
Quarter: 2012Q1

REPORT INFORMATION
  Report Type: 
  Country: None (occurrence: None)
  Receive Date: 20120329
  Receipt Date: 20120326
  Transmission Date: 20120608
  Serious: Yes (Death, Hospitalization, Other)
  Sender: FDA-Public Use
  Company Number: PHHY2012BR026283

PATIENT
  Sex: Male

DRUGS (3)
  1. SPIRIVA [Suspect]
     Indication: EMPHYSEMA
     Dosage: 1 DF, AT NIGHT
  2. FORMOTEROL FUMARATE [Suspect]
     Indication: EMPHYSEMA
     Dosage: 2 INHALATIONS A DAY
  3. ONBREZ [Suspect]
     Indication: EMPHYSEMA
     Dosage: 150 UG, ONE TIME A DAY IN THE MORNING

REACTIONS (2)
  - EMPHYSEMA [None]
  - LEUKAEMIA [None]
